FAERS Safety Report 7529147-8 (Version None)
Quarter: 2011Q2

REPORT INFORMATION
  Report Type: 
  Country: None (occurrence: None)
  Receive Date: 20110607
  Receipt Date: 20110527
  Transmission Date: 20111010
  Serious: Yes (Hospitalization, Other)
  Sender: FDA-Public Use
  Company Number: US-SANOFI-AVENTIS-2011SA034395

PATIENT
  Age: 77 Year
  Sex: Female

DRUGS (3)
  1. LANTUS [Suspect]
     Indication: DIABETES MELLITUS
     Dosage: DOSE:30 UNIT(S)
     Route: 058
     Dates: start: 20010101
  2. INSULIN [Concomitant]
  3. OPTICLICK [Suspect]
     Indication: DIABETES MELLITUS
     Dates: start: 20010101, end: 20110526

REACTIONS (2)
  - CARDIAC DISORDER [None]
  - PNEUMONIA [None]
